FAERS Safety Report 24260910 (Version 2)
Quarter: 2025Q3

REPORT INFORMATION
  Report Type: Spontaneous
  Country: US (occurrence: US)
  Receive Date: 20240828
  Receipt Date: 20250922
  Transmission Date: 20251021
  Serious: Yes (Other)
  Sender: SANDOZ
  Company Number: US-SANDOZ-SDZ2024US075188

PATIENT
  Sex: Female

DRUGS (3)
  1. DIFLUPREDNATE [Suspect]
     Active Substance: DIFLUPREDNATE
     Dosage: 1 DROP, QD
     Route: 047
  2. DIFLUPREDNATE [Suspect]
     Active Substance: DIFLUPREDNATE
     Dosage: 2 DROP, QD
     Route: 047
  3. DIFLUPREDNATE [Suspect]
     Active Substance: DIFLUPREDNATE
     Indication: Product used for unknown indication
     Dosage: 3 DROP, QD (0.05%)
     Route: 047

REACTIONS (5)
  - Post procedural complication [Unknown]
  - Glaucoma [Unknown]
  - Macular oedema [Unknown]
  - Eyelid ptosis [Unknown]
  - Intraocular pressure test abnormal [Unknown]
